FAERS Safety Report 9612610 (Version 2)
Quarter: 2013Q4

REPORT INFORMATION
  Report Type: Spontaneous
  Country: US (occurrence: US)
  Receive Date: 20131010
  Receipt Date: 20131227
  Transmission Date: 20140711
  Serious: Yes (Other)
  Sender: FDA-Public Use
  Company Number: US-JNJFOC-20131002493

PATIENT
  Age: 84 Year
  Sex: Male
  Weight: 80.29 kg

DRUGS (16)
  1. XARELTO [Suspect]
     Indication: CEREBROVASCULAR ACCIDENT PROPHYLAXIS
     Dosage: STRENGTH: 20 MG
     Route: 048
     Dates: start: 20130716
  2. XARELTO [Suspect]
     Indication: ATRIAL FIBRILLATION
     Dosage: STRENGTH: 20 MG
     Route: 048
     Dates: start: 20130716
  3. ALLOPURINOL [Concomitant]
     Dosage: STRENGTH: 300 MG
     Route: 048
  4. LASIX [Concomitant]
     Dosage: STRENGTH: 20 MG
     Route: 048
  5. LASIX [Concomitant]
     Dosage: STRENGTH: 40 MG
     Route: 042
  6. DIGOXIN [Concomitant]
     Dosage: STRENGTH: 250 MCG
     Route: 048
  7. GABAPENTIN [Concomitant]
     Dosage: STRENGTH: 300 MG
     Route: 048
  8. NOVOLOG [Concomitant]
     Dosage: UNITS
     Route: 058
  9. LANTUS [Concomitant]
     Dosage: UNITS
     Route: 058
  10. LISINOPRIL [Concomitant]
     Dosage: STRENGTH: 10 MG
     Route: 048
  11. ONDANSETRON [Concomitant]
     Dosage: STRENGTH: 8 MG, DOSAGE INTERVAL: Q8H PRN
     Route: 048
  12. PANTOPRAZOLE [Concomitant]
     Dosage: STRENGTH: 40 MG
     Route: 048
  13. KCL [Concomitant]
     Dosage: STRENGTH: 20 MEQ
     Route: 048
  14. PROMETHAZINE [Concomitant]
     Dosage: STRENGTH: 25 MG, DOSAGE INTERVAL: Q4-6 HR PRN
     Route: 048
  15. CARVEDILOL [Concomitant]
     Dosage: STRENGTH: 25 MG
     Route: 048
  16. IRON [Concomitant]
     Dosage: STRENGTH: 65 MG
     Route: 048

REACTIONS (5)
  - International normalised ratio increased [Unknown]
  - Prothrombin time prolonged [Unknown]
  - Activated partial thromboplastin time prolonged [Unknown]
  - Blood creatinine increased [Unknown]
  - Blood glucose increased [Unknown]
